FAERS Safety Report 4880049-5 (Version None)
Quarter: 2005Q4

REPORT INFORMATION
  Report Type: 
  Country: None (occurrence: None)
  Receive Date: 20051223
  Receipt Date: 20050901
  Transmission Date: 20060501
  Serious: Yes (Hospitalization)
  Sender: FDA-Public Use
  Company Number: 05P-16-0310075

PATIENT
  Age: 69 Year
  Sex: Male
  Weight: 100.5 kg

DRUGS (6)
  1. HUMIRA [Suspect]
     Indication: RHEUMATOID ARTHRITIS
     Dosage: 40 MG, 1 IN 2 WK, SUBCUTANEOUS
     Route: 058
     Dates: start: 20030101, end: 20041201
  2. AVINZA [Concomitant]
  3. VICODIN [Concomitant]
  4. OXYCOCET [Concomitant]
  5. PREDNISONE [Concomitant]
  6. CYCLOBENZAPRINE HCL [Concomitant]

REACTIONS (1)
  - PROSTATE CANCER [None]
